FAERS Safety Report 18353249 (Version 1)
Quarter: 2020Q4

REPORT INFORMATION
  Report Type: Spontaneous
  Country: DE (occurrence: DE)
  Receive Date: 20201007
  Receipt Date: 20201007
  Transmission Date: 20210114
  Serious: Yes (Other)
  Sender: FDA-Public Use
  Company Number: DE-TEVA-2020-DE-1835478

PATIENT
  Age: 94 Year
  Sex: Female
  Weight: 50 kg

DRUGS (8)
  1. HALOPERIDOL-RATIOPHARM 5 MG TABLETTEN [Suspect]
     Active Substance: HALOPERIDOL
     Indication: SUBSTANCE-INDUCED PSYCHOTIC DISORDER
     Dosage: EXACT DOSAGE UNKNOWN (PROBABLY 1X1)
     Route: 048
     Dates: start: 20200904, end: 20200905
  2. PROSTAVASIN 20 MCG PULVER ZUR HERSTELLUNG EINER INFUSIONSLOSUNG [Suspect]
     Active Substance: ALPROSTADIL ALFADEX
     Dosage: EXACT DOSAGE AND MODE OF ADMINISTRATION UNKNOWN
     Dates: start: 20200710
  3. ELIQUIS 5 MG FILMTABLETTEN [Concomitant]
     Dosage: 10 MILLIGRAM DAILY; 2X1, 10MG
     Route: 048
     Dates: start: 201908
  4. TORASEMID AL 5 MG TABLETTEN [Concomitant]
     Dosage: 5 MILLIGRAM DAILY; 1X1, TAKING FOR A LONG TIME, 5MG
     Route: 048
  5. ATORVASTATIN-RATIOPHARM 20 MG FILMTABLETTEN [Concomitant]
     Active Substance: ATORVASTATIN
     Dosage: 20 MILLIGRAM DAILY; 1X1, TAKING FOR A LONG TIME, 20MG
     Route: 048
  6. METOPROLOLSUCCINAT AL 47,5 MG RETARDTABLETTEN [Concomitant]
     Dosage: 47.5 MILLIGRAM DAILY; 1X1, TAKING FOR A LONG TIME, 47.5MG
     Route: 048
  7. PALEXIA [Suspect]
     Active Substance: TAPENTADOL HYDROCHLORIDE
     Indication: PAIN
     Dosage: 50 MILLIGRAM DAILY; 1 DF AT NIGHT, 50MG
     Route: 048
     Dates: start: 20200828, end: 20200905
  8. RAMIPRIL-1A PHARMA 10 MG TABLETTEN [Concomitant]
     Dosage: 10 MILLIGRAM DAILY; 1X1, 10MG
     Route: 048
     Dates: start: 201909

REACTIONS (6)
  - Malaise [Recovering/Resolving]
  - Loss of personal independence in daily activities [Unknown]
  - Circulatory collapse [Unknown]
  - Dizziness [Recovering/Resolving]
  - Mobility decreased [Unknown]
  - Fall [Unknown]

NARRATIVE: CASE EVENT DATE: 202009
